FAERS Safety Report 6901913-9 (Version None)
Quarter: 2010Q3

REPORT INFORMATION
  Report Type: 
  Country: None (occurrence: None)
  Receive Date: 20100803
  Receipt Date: 20080325
  Transmission Date: 20110219
  Serious: No
  Sender: FDA-Public Use
  Company Number: US-PFIZER INC-2008026755

PATIENT
  Sex: Female
  Weight: 72.727 kg

DRUGS (2)
  1. LYRICA [Suspect]
     Indication: FIBROMYALGIA
     Dates: start: 20070201
  2. LEXAPRO [Concomitant]

REACTIONS (1)
  - WEIGHT INCREASED [None]
